FAERS Safety Report 9470693 (Version 1)
Quarter: 2013Q3

REPORT INFORMATION
  Report Type: Spontaneous
  Country: US (occurrence: None)
  Receive Date: 20130820
  Receipt Date: 20130820
  Transmission Date: 20140515
  Serious: Yes (Other)
  Sender: FDA-Public Use
  Company Number: None

PATIENT
  Age: 56 None
  Sex: Female
  Weight: 90.72 kg

DRUGS (7)
  1. TOVIAZ [Suspect]
     Indication: URINARY INCONTINENCE
     Dosage: 8 MG 30 2X DAILY BY MOUTH
     Route: 048
     Dates: start: 20130801, end: 20130804
  2. LOSARTAN [Concomitant]
  3. PANTOPRAZOLE [Concomitant]
  4. MELOXICAM [Concomitant]
  5. CARISOPRODAL [Concomitant]
  6. ASPIRIN [Concomitant]
  7. OMEGA 3 KRILL OIL [Concomitant]

REACTIONS (3)
  - Heart rate increased [None]
  - Heart rate irregular [None]
  - Blood pressure abnormal [None]
